FAERS Safety Report 21781685 (Version 1)
Quarter: 2022Q4

REPORT INFORMATION
  Report Type: Spontaneous
  Country: CA (occurrence: CA)
  Receive Date: 20221227
  Receipt Date: 20221227
  Transmission Date: 20230112
  Serious: Yes (Other)
  Sender: FDA-Public Use
  Company Number: CA-ABBVIE-4250170

PATIENT
  Age: 40 Year
  Sex: Female
  Weight: 59 kg

DRUGS (5)
  1. HUMIRA [Suspect]
     Active Substance: ADALIMUMAB
     Indication: Crohn^s disease
     Route: 058
  2. INFLECTRA [Suspect]
     Active Substance: INFLIXIMAB-DYYB
     Indication: Crohn^s disease
     Dosage: 5 MG/KG Q 0, 2, 6, THEN EVERY 8 WEEKS
     Route: 042
     Dates: start: 20221025
  3. PREDNISONE [Concomitant]
     Active Substance: PREDNISONE
     Indication: Product used for unknown indication
  4. ENTOCORT [Concomitant]
     Active Substance: BUDESONIDE
     Indication: Product used for unknown indication
     Dates: end: 2022
  5. IMURAN [Concomitant]
     Active Substance: AZATHIOPRINE
     Indication: Product used for unknown indication

REACTIONS (13)
  - Haematochezia [Unknown]
  - Coccydynia [Recovering/Resolving]
  - Abdominal pain [Recovering/Resolving]
  - Faeces hard [Unknown]
  - Alopecia [Unknown]
  - Pseudopolyposis [Unknown]
  - Proctalgia [Not Recovered/Not Resolved]
  - Vomiting [Not Recovered/Not Resolved]
  - Nausea [Not Recovered/Not Resolved]
  - Maternal exposure during pregnancy [Unknown]
  - Gastrointestinal scarring [Unknown]
  - Swelling [Not Recovered/Not Resolved]
  - Weight gain poor [Recovering/Resolving]

NARRATIVE: CASE EVENT DATE: 20220411
